FAERS Safety Report 21072518 (Version 1)
Quarter: 2022Q3

REPORT INFORMATION
  Report Type: Spontaneous
  Country: US (occurrence: None)
  Receive Date: 20220712
  Receipt Date: 20220712
  Transmission Date: 20221027
  Serious: Yes (Death)
  Sender: FDA-Public Use
  Company Number: None

PATIENT
  Age: 69 Year
  Sex: Male

DRUGS (1)
  1. KYNMOBI [Suspect]
     Active Substance: APOMORPHINE HYDROCHLORIDE
     Indication: Parkinson^s disease
     Dosage: FREQUENCY FOR KYNOBI: UNDER THE TONGUE DAILY AS NEEDED (OFF PERIOD) NOT TO EXCEEDED 5 DOSES IN 24 HO
     Dates: start: 20210903

REACTIONS (1)
  - Death [None]

NARRATIVE: CASE EVENT DATE: 20220623
